FAERS Safety Report 4555296-2 (Version None)
Quarter: 2005Q1

REPORT INFORMATION
  Report Type: 
  Country: None (occurrence: None)
  Receive Date: 20041227
  Receipt Date: 20040603
  Transmission Date: 20050727
  Serious: No
  Sender: FDA-Public Use
  Company Number: US078844

PATIENT
  Age: 61 Year
  Sex: Female

DRUGS (8)
  1. ARANESP [Suspect]
     Indication: ANAEMIA
     Dosage: 60 MCG, 1 IN 2 MONTHS,SC
     Route: 058
     Dates: start: 20040322, end: 20040518
  2. DILTIAZEM HYDROCHLORIDE [Concomitant]
  3. LEVOTHYROXINE SODIUM [Concomitant]
  4. OLMESARTAN MEDOXOMIL [Concomitant]
  5. HYDROCHLOROTHIAZIDE [Concomitant]
  6. FEXOFENADINE HYDROCHLORIDE [Concomitant]
  7. METOPROLOL SUCCINATE [Concomitant]
  8. BUPROPION HCL [Concomitant]

REACTIONS (12)
  - BLOOD PRESSURE INCREASED [None]
  - CHEST PAIN [None]
  - DIARRHOEA [None]
  - FACE OEDEMA [None]
  - HAEMATOCHEZIA [None]
  - HICCUPS [None]
  - NAUSEA [None]
  - PARAESTHESIA [None]
  - PRURITUS [None]
  - RASH [None]
  - VOMITING [None]
  - WEIGHT DECREASED [None]
